FAERS Safety Report 18365331 (Version 2)
Quarter: 2020Q4

REPORT INFORMATION
  Report Type: Spontaneous
  Country: JP (occurrence: JP)
  Receive Date: 20201009
  Receipt Date: 20201023
  Transmission Date: 20210114
  Serious: Yes (Other)
  Sender: FDA-Public Use
  Company Number: JP-ROCHE-2661458

PATIENT
  Age: 74 Year
  Sex: Male
  Weight: 52 kg

DRUGS (5)
  1. TECENTRIQ [Suspect]
     Active Substance: ATEZOLIZUMAB
     Indication: SMALL CELL LUNG CANCER
     Route: 041
     Dates: start: 20200115, end: 20200414
  2. G-LASTA [Concomitant]
     Active Substance: PEGFILGRASTIM
  3. CARBOPLATIN. [Suspect]
     Active Substance: CARBOPLATIN
     Indication: SMALL CELL LUNG CANCER
     Dosage: 5/TIME
     Route: 041
     Dates: start: 20200115, end: 20200324
  4. ETOPOSIDE. [Suspect]
     Active Substance: ETOPOSIDE
     Indication: SMALL CELL LUNG CANCER
     Dosage: 150MG/M2
     Route: 041
     Dates: start: 20200115, end: 20200326
  5. ZOLEDRONATE [Concomitant]
     Active Substance: ZOLEDRONIC ACID

REACTIONS (3)
  - Platelet count decreased [Recovering/Resolving]
  - Neutrophil count abnormal [Unknown]
  - Constipation [Unknown]

NARRATIVE: CASE EVENT DATE: 20200115
